FAERS Safety Report 8886785 (Version 3)
Quarter: 2013Q3

REPORT INFORMATION
  Report Type: Report from Study
  Country: JP (occurrence: JP)
  Receive Date: 20121105
  Receipt Date: 20130913
  Transmission Date: 20140515
  Serious: Yes (Other)
  Sender: FDA-Public Use
  Company Number: JP-VERTEX PHARMACEUTICAL INC.-AE-2012-009611

PATIENT
  Age: 60 Year
  Sex: Male

DRUGS (19)
  1. VX-950 (TELAPREVIR) [Suspect]
     Indication: CHRONIC HEPATITIS C
     Dosage: 1500 MG, UNK
     Route: 048
     Dates: start: 20120501, end: 20120730
  2. RIBAVIRIN [Suspect]
     Indication: HEPATITIS C
     Route: 048
     Dates: start: 20120501, end: 20120514
  3. RIBAVIRIN [Suspect]
     Dosage: 200 MG, UNK
     Route: 048
     Dates: start: 20120515, end: 20120528
  4. RIBAVIRIN [Suspect]
     Dosage: 100 MG, UNK
     Route: 048
     Dates: start: 20120529
  5. RIBAVIRIN [Suspect]
     Dosage: 100 MG, UNK
     Route: 048
     Dates: start: 20120529, end: 20120624
  6. RIBAVIRIN [Suspect]
     Dosage: 200 MG, UNK
     Route: 048
     Dates: start: 20120625, end: 20120708
  7. RIBAVIRIN [Suspect]
     Dosage: 100 MG, UNK
     Route: 048
     Dates: start: 20120709
  8. RIBAVIRIN [Suspect]
     Dosage: 100 UNK, UNK
     Route: 048
     Dates: start: 20120827, end: 20120904
  9. RIBAVIRIN [Suspect]
     Dosage: 200 UNK, UNK
     Route: 048
     Dates: start: 20120905, end: 20120918
  10. RIBAVIRIN [Suspect]
     Dosage: 400 UNK, UNK
     Route: 048
     Dates: start: 20120919, end: 20121028
  11. RIBAVIRIN [Suspect]
     Dosage: 200 UNK, UNK
     Route: 048
     Dates: start: 20121029
  12. PEGINTERFERON ALFA-2B [Concomitant]
     Dosage: 1.5 ?G/KG, UNK
     Route: 058
     Dates: start: 20120501
  13. GASMOTIN [Concomitant]
     Route: 048
     Dates: start: 20120501
  14. NESP [Concomitant]
     Dosage: 60 ?G, UNK
     Route: 058
     Dates: start: 20120702, end: 20120723
  15. PAXIL [Concomitant]
     Dosage: 20 MG, UNK
     Route: 048
  16. SEDEKOPAN [Concomitant]
     Dosage: 1.5 MG, UNK
     Route: 048
  17. BROMANOME [Concomitant]
     Dosage: 50 MG, UNK
     Route: 048
     Dates: end: 20121028
  18. ALLOPURINOL [Concomitant]
     Dosage: 100 MG, UNK
     Route: 048
     Dates: start: 20121029
  19. ALLOPURINOL [Concomitant]
     Dosage: 300 MG, QD
     Route: 048
     Dates: end: 20120725

REACTIONS (4)
  - Decreased appetite [Recovered/Resolved]
  - Anaemia [Not Recovered/Not Resolved]
  - Anaemia [Not Recovered/Not Resolved]
  - Anaemia [Not Recovered/Not Resolved]
